FAERS Safety Report 25246174 (Version 1)
Quarter: 2025Q2

REPORT INFORMATION
  Report Type: Spontaneous
  Country: CA (occurrence: CA)
  Receive Date: 20250428
  Receipt Date: 20250428
  Transmission Date: 20250716
  Serious: Yes (Death, Life-Threatening, Hospitalization, Disabling, Other)
  Sender: Haleon PLC
  Company Number: CA-002147023-NVSC2025CA046872

PATIENT
  Age: 44 Year
  Sex: Female
  Weight: 97 kg

DRUGS (7)
  1. DICLOFENAC SODIUM [Suspect]
     Active Substance: DICLOFENAC SODIUM
     Indication: Rheumatoid arthritis
     Route: 065
  2. ALENDRONIC ACID [Suspect]
     Active Substance: ALENDRONIC ACID
     Indication: Rheumatoid arthritis
     Route: 048
  3. ADALIMUMAB [Suspect]
     Active Substance: ADALIMUMAB
     Indication: Psoriatic arthropathy
     Route: 058
  4. ADALIMUMAB [Suspect]
     Active Substance: ADALIMUMAB
     Indication: Rheumatoid arthritis
     Route: 065
  5. ADALIMUMAB [Suspect]
     Active Substance: ADALIMUMAB
     Route: 065
  6. ERELZI [Suspect]
     Active Substance: ETANERCEPT-SZZS
     Indication: Rheumatoid arthritis
     Route: 065
  7. DICLOFENAC POTASSIUM [Suspect]
     Active Substance: DICLOFENAC POTASSIUM
     Indication: Rheumatoid arthritis
     Route: 048

REACTIONS (49)
  - Pancreatitis [Fatal]
  - Migraine [Fatal]
  - Muscle injury [Fatal]
  - General physical health deterioration [Fatal]
  - Osteoarthritis [Fatal]
  - Memory impairment [Fatal]
  - Mobility decreased [Fatal]
  - Inflammation [Fatal]
  - Insomnia [Fatal]
  - Oedema peripheral [Fatal]
  - Night sweats [Fatal]
  - Grip strength decreased [Fatal]
  - Joint range of motion decreased [Fatal]
  - Hypertension [Fatal]
  - Hypercholesterolaemia [Fatal]
  - Headache [Fatal]
  - Pain [Fatal]
  - Obesity [Fatal]
  - Muscle spasms [Fatal]
  - Helicobacter infection [Fatal]
  - Grip strength [Fatal]
  - Lip dry [Fatal]
  - Osteoporosis [Fatal]
  - Ill-defined disorder [Fatal]
  - Glossodynia [Fatal]
  - Hypoaesthesia [Fatal]
  - Irritable bowel syndrome [Fatal]
  - Lupus-like syndrome [Fatal]
  - Laryngitis [Fatal]
  - Hepatic cirrhosis [Fatal]
  - Muscular weakness [Fatal]
  - Joint swelling [Fatal]
  - Infusion related reaction [Fatal]
  - Impaired healing [Fatal]
  - Laboratory test abnormal [Fatal]
  - Hypersensitivity [Fatal]
  - Hand deformity [Fatal]
  - Lupus vulgaris [Fatal]
  - Liver injury [Fatal]
  - Nausea [Fatal]
  - Oedema [Fatal]
  - Lung disorder [Fatal]
  - Musculoskeletal pain [Fatal]
  - Musculoskeletal stiffness [Fatal]
  - Infection [Fatal]
  - Nasopharyngitis [Fatal]
  - Liver disorder [Fatal]
  - Lower respiratory tract infection [Fatal]
  - Malaise [Fatal]
